FAERS Safety Report 18775218 (Version 1)
Quarter: 2021Q1

REPORT INFORMATION
  Report Type: Spontaneous
  Country: HR (occurrence: HR)
  Receive Date: 20210122
  Receipt Date: 20210122
  Transmission Date: 20210419
  Serious: Yes (Other)
  Sender: FDA-Public Use
  Company Number: NVSC2021HR010553

PATIENT
  Sex: Female

DRUGS (1)
  1. SANVAL [Suspect]
     Active Substance: ZOLPIDEM TARTRATE
     Indication: PRODUCT USED FOR UNKNOWN INDICATION
     Dosage: UNK (ADR ADEQUATELY LABELLED: YES)
     Route: 048
     Dates: start: 20201212, end: 20201212

REACTIONS (3)
  - Loss of consciousness [Unknown]
  - Head injury [Unknown]
  - Hypopnoea [Unknown]

NARRATIVE: CASE EVENT DATE: 20201212
